FAERS Safety Report 7053971-1 (Version None)
Quarter: 2010Q4

REPORT INFORMATION
  Report Type: 
  Country: None (occurrence: None)
  Receive Date: 20101020
  Receipt Date: 20100907
  Transmission Date: 20110411
  Serious: Yes (Death, Life-Threatening, Disabling, Other)
  Sender: FDA-Public Use
  Company Number: US-BAXTER-2009BH013025

PATIENT
  Age: 73 Year
  Sex: Female
  Weight: 92 kg

DRUGS (18)
  1. HEPARIN SODIUM INJECTION [Suspect]
     Indication: MITRAL VALVE REPAIR
     Route: 058
     Dates: start: 20071031, end: 20071103
  2. HEPARIN SODIUM INJECTION [Suspect]
     Indication: TRICUSPID VALVE REPAIR
     Route: 058
     Dates: start: 20071031, end: 20071103
  3. HEPARIN SODIUM INJECTION [Suspect]
     Indication: COX-MAZE PROCEDURE
     Route: 058
     Dates: start: 20071031, end: 20071103
  4. HEPARIN SODIUM INJECTION [Suspect]
     Route: 042
     Dates: start: 20071031, end: 20071031
  5. HEPARIN SODIUM INJECTION [Suspect]
     Route: 042
     Dates: start: 20071031, end: 20071031
  6. HEPARIN SODIUM INJECTION [Suspect]
     Route: 042
     Dates: start: 20071031, end: 20071031
  7. HEPARIN SODIUM 5,000 UNITS IN DEXTROSE 5% [Suspect]
     Indication: THROMBOSIS PROPHYLAXIS
     Route: 041
     Dates: start: 20071028, end: 20071030
  8. PREVACID [Concomitant]
     Indication: PRODUCT USED FOR UNKNOWN INDICATION
     Route: 065
  9. PLAVIX [Concomitant]
     Indication: PRODUCT USED FOR UNKNOWN INDICATION
     Route: 065
  10. ATORVASTATIN [Concomitant]
     Indication: PRODUCT USED FOR UNKNOWN INDICATION
     Route: 065
  11. ASPIRIN [Concomitant]
     Indication: PRODUCT USED FOR UNKNOWN INDICATION
     Route: 048
  12. TOPROL-XL [Concomitant]
     Indication: PRODUCT USED FOR UNKNOWN INDICATION
     Route: 048
  13. IMDUR [Concomitant]
     Indication: PRODUCT USED FOR UNKNOWN INDICATION
     Route: 048
  14. DESYREL [Concomitant]
     Indication: PRODUCT USED FOR UNKNOWN INDICATION
     Route: 048
  15. POTASSIUM [Concomitant]
     Indication: PRODUCT USED FOR UNKNOWN INDICATION
     Route: 048
  16. LANOXIN [Concomitant]
     Indication: PRODUCT USED FOR UNKNOWN INDICATION
     Route: 048
  17. LASIX [Concomitant]
     Indication: PRODUCT USED FOR UNKNOWN INDICATION
     Route: 048
  18. MUPIROCIN [Concomitant]
     Indication: PRODUCT USED FOR UNKNOWN INDICATION
     Route: 061

REACTIONS (14)
  - ARTERIAL THROMBOSIS LIMB [None]
  - CARDIAC ARREST [None]
  - CARDIOGENIC SHOCK [None]
  - COMA [None]
  - HYPOTENSION [None]
  - NAUSEA [None]
  - PARALYSIS [None]
  - PULMONARY EMBOLISM [None]
  - RENAL FAILURE ACUTE [None]
  - RESPIRATORY FAILURE [None]
  - STAPHYLOCOCCAL SEPSIS [None]
  - SWELLING [None]
  - THROMBOCYTOPENIA [None]
  - VOMITING [None]
